FAERS Safety Report 8507969 (Version 2)
Quarter: 2014Q2

REPORT INFORMATION
  Report Type: Spontaneous
  Country: US (occurrence: US)
  Receive Date: 20120412
  Receipt Date: 20140514
  Transmission Date: 20141212
  Serious: No
  Sender: FDA-Public Use
  Company Number: US-ASTRAZENECA-2011SE34417

PATIENT
  Age: 42 Year
  Sex: Male
  Weight: 81.6 kg

DRUGS (7)
  1. NEXIUM [Suspect]
     Indication: GASTROOESOPHAGEAL REFLUX DISEASE
     Route: 048
     Dates: start: 2009
  2. NEXIUM [Suspect]
     Indication: GASTRIC ULCER
     Route: 048
     Dates: start: 2009
  3. NEXIUM [Suspect]
     Indication: HIATUS HERNIA
     Route: 048
     Dates: start: 2009
  4. SYMBICORT [Suspect]
     Dosage: 80/4.5 MCG,TWO TO THREE TIMES PER WEEK
     Route: 055
     Dates: end: 20140416
  5. ACETAMINOPHEN [Concomitant]
  6. CARBIDOPA [Concomitant]
     Indication: RESTLESS LEGS SYNDROME
  7. PERCOCET [Concomitant]

REACTIONS (24)
  - Respiratory disorder [Unknown]
  - Dyspepsia [Unknown]
  - Pneumonia [Unknown]
  - Bronchitis [Unknown]
  - Anxiety [Unknown]
  - Bone pain [Unknown]
  - Cough [Unknown]
  - Painful defaecation [Unknown]
  - Glaucoma [Not Recovered/Not Resolved]
  - Pain in extremity [Unknown]
  - Pain in extremity [Unknown]
  - Restless legs syndrome [Unknown]
  - Flatulence [Unknown]
  - Diarrhoea [Unknown]
  - Constipation [Unknown]
  - Dry mouth [Unknown]
  - Abdominal discomfort [Not Recovered/Not Resolved]
  - Abdominal pain [Unknown]
  - Headache [Unknown]
  - Arthralgia [Unknown]
  - Adverse event [Not Recovered/Not Resolved]
  - Back pain [Unknown]
  - Drug dose omission [Unknown]
  - Intentional product misuse [Recovered/Resolved]
